FAERS Safety Report 9808075 (Version 1)
Quarter: 2014Q1

REPORT INFORMATION
  Report Type: Spontaneous
  Country: TR (occurrence: TR)
  Receive Date: 20140110
  Receipt Date: 20140110
  Transmission Date: 20141002
  Serious: Yes (Hospitalization)
  Sender: FDA-Public Use
  Company Number: TR-GLAXOSMITHKLINE-B0958313A

PATIENT
  Sex: Female

DRUGS (2)
  1. LAMOTRIGINE [Suspect]
     Indication: PRODUCT USED FOR UNKNOWN INDICATION
     Dosage: 300MG PER DAY
     Route: 065
  2. VALPROIC ACID [Suspect]
     Indication: PRODUCT USED FOR UNKNOWN INDICATION
     Dosage: 400MG TWICE PER DAY
     Route: 065

REACTIONS (8)
  - Hypotonia [Recovered/Resolved]
  - Hypophagia [Recovered/Resolved]
  - Foetal exposure during pregnancy [Unknown]
  - Drug interaction [Unknown]
  - Sepsis syndrome [Unknown]
  - Decreased activity [Unknown]
  - Poor sucking reflex [Unknown]
  - Grunting [Unknown]
